FAERS Safety Report 8452587 (Version 3)
Quarter: 2015Q2

REPORT INFORMATION
  Report Type: Spontaneous
  Country: US (occurrence: US)
  Receive Date: 20120312
  Receipt Date: 20150417
  Transmission Date: 20150821
  Serious: Yes (Hospitalization, Other)
  Sender: FDA-Public Use
  Company Number: US-PFIZER INC-2012062039

PATIENT
  Age: 33 Year
  Sex: Male

DRUGS (4)
  1. DILANTIN [Suspect]
     Active Substance: PHENYTOIN
     Indication: SEIZURE
     Dosage: 300 MG, 1X/DAY, AT BED TIME
     Route: 048
     Dates: start: 20100401, end: 20100412
  2. DILANTIN [Suspect]
     Active Substance: PHENYTOIN
     Dosage: 100 MG, 3X/DAY, WITH MEALS
     Route: 048
     Dates: start: 20100413
  3. TEMAZEPAM. [Concomitant]
     Active Substance: TEMAZEPAM
     Dosage: 15 MG, 1X/DAY, AT BED TIME
     Route: 048
     Dates: start: 20100413
  4. DILANTIN [Suspect]
     Active Substance: PHENYTOIN
     Dosage: 1100 MG, AT A TIME
     Route: 048

REACTIONS (1)
  - Stevens-Johnson syndrome [Recovering/Resolving]

NARRATIVE: CASE EVENT DATE: 20100422
